FAERS Safety Report 19913410 (Version 1)
Quarter: 2021Q4

REPORT INFORMATION
  Report Type: Spontaneous
  Country: ES (occurrence: ES)
  Receive Date: 20211004
  Receipt Date: 20211004
  Transmission Date: 20220303
  Serious: Yes (Other)
  Sender: FDA-Public Use
  Company Number: ES-CLOVIS ONCOLOGY-CLO-2021-001445

PATIENT

DRUGS (1)
  1. RUBRACA [Suspect]
     Active Substance: RUCAPARIB CAMSYLATE
     Indication: Recurrent cancer
     Dosage: 600 MILLIGRAM, BID
     Dates: start: 20201222, end: 20210118

REACTIONS (8)
  - Hepatotoxicity [Unknown]
  - Malignant neoplasm progression [Unknown]
  - Back pain [Unknown]
  - Anaemia [Unknown]
  - Dysgeusia [Unknown]
  - Nausea [Recovered/Resolved]
  - Asthenia [Recovered/Resolved]
  - Decreased appetite [Recovered/Resolved]

NARRATIVE: CASE EVENT DATE: 20210301
